FAERS Safety Report 16850647 (Version 1)
Quarter: 2019Q3

REPORT INFORMATION
  Report Type: Spontaneous
  Country: US (occurrence: US)
  Receive Date: 20190925
  Receipt Date: 20190925
  Transmission Date: 20191005
  Serious: No
  Sender: FDA-Public Use
  Company Number: US-THERAPEUTICSMD-2019TMD01679

PATIENT
  Age: 77 Year
  Sex: Female
  Weight: 87.08 kg

DRUGS (2)
  1. UNSPECIFIED MEDICATIONS (^ABOUT 17 PILLS^) [Concomitant]
     Dosage: UNK
  2. IMVEXXY [Suspect]
     Active Substance: ESTRADIOL
     Indication: URINARY TRACT INFECTION
     Dosage: 10 ?G, 2X/WEEK WHILE UPRIGHT AND ACTIVE ON MONDAY AND THURSDAY
     Route: 067
     Dates: start: 201906

REACTIONS (3)
  - Off label use [Not Recovered/Not Resolved]
  - Fatigue [Unknown]
  - Vaginal haemorrhage [Not Recovered/Not Resolved]

NARRATIVE: CASE EVENT DATE: 201906
